FAERS Safety Report 6083602-9 (Version None)
Quarter: 2009Q1

REPORT INFORMATION
  Report Type: 
  Country: None (occurrence: None)
  Receive Date: 20090219
  Receipt Date: 20090217
  Transmission Date: 20090719
  Serious: Yes (Hospitalization)
  Sender: FDA-Public Use
  Company Number: DE-BRISTOL-MYERS SQUIBB COMPANY-14445670

PATIENT
  Age: 72 Year
  Sex: Male

DRUGS (4)
  1. HYDROXYUREA [Suspect]
     Indication: POLYCYTHAEMIA VERA
     Route: 048
     Dates: start: 20081101, end: 20081215
  2. BISOPROLOL [Concomitant]
     Indication: CORONARY ARTERY DISEASE
  3. MELOXICAM [Concomitant]
     Indication: OSTEOARTHRITIS
     Dosage: TAKEN FOR 8 MONTHS
  4. AMLODIPINE [Concomitant]
     Indication: HYPERTENSION
     Dosage: TAKEN FOR MORE THAN 1 YR

REACTIONS (1)
  - HYPERSENSITIVITY [None]
